FAERS Safety Report 17677285 (Version 1)
Quarter: 2020Q2

REPORT INFORMATION
  Report Type: Spontaneous
  Country: US (occurrence: US)
  Receive Date: 20200416
  Receipt Date: 20200416
  Transmission Date: 20200714
  Serious: No
  Sender: FDA-Public Use
  Company Number: US-PERRIGO-19US013783

PATIENT
  Age: 68 Year
  Sex: Female
  Weight: 52.15 kg

DRUGS (2)
  1. CLOBETASOL PROPIONATE. [Suspect]
     Active Substance: CLOBETASOL PROPIONATE
     Indication: RASH
     Dosage: 1 APPLICATION (FOAM), BID, PRN
     Route: 061
     Dates: start: 201906, end: 2019
  2. CLOBETASOL PROPIONATE. [Suspect]
     Active Substance: CLOBETASOL PROPIONATE
     Dosage: 1 APPLICATION (LIQUID), BID, PRN
     Route: 061
     Dates: start: 201908, end: 201910

REACTIONS (2)
  - Inappropriate schedule of product administration [Recovered/Resolved]
  - Wrong technique in product usage process [Recovered/Resolved]

NARRATIVE: CASE EVENT DATE: 201906
